FAERS Safety Report 17546453 (Version 1)
Quarter: 2020Q1

REPORT INFORMATION
  Report Type: Spontaneous
  Country: US (occurrence: US)
  Receive Date: 20200316
  Receipt Date: 20200316
  Transmission Date: 20200409
  Serious: Yes (Hospitalization)
  Sender: FDA-Public Use
  Company Number: None

PATIENT
  Sex: Female

DRUGS (4)
  1. L-IHYROXINE [Concomitant]
  2. DESMOPRESSIN [Concomitant]
     Active Substance: DESMOPRESSIN
  3. HYDROCORTISONE. [Concomitant]
     Active Substance: HYDROCORTISONE
  4. OMNITROPE [Suspect]
     Active Substance: SOMATROPIN
     Indication: HYPOPITUITARISM
     Dosage: 6 DAYS PER WEEK
     Route: 058
     Dates: start: 20151228

REACTIONS (1)
  - Malaise [None]
